FAERS Safety Report 16799470 (Version 1)
Quarter: 2019Q3

REPORT INFORMATION
  Report Type: Spontaneous
  Country: US (occurrence: US)
  Receive Date: 20190722
  Receipt Date: 20190722
  Transmission Date: 20191005
  Serious: No
  Sender: FDA-Public Use
  Company Number: None

PATIENT
  Age: 69 Year
  Sex: Female

DRUGS (2)
  1. ANASTRAZOLE [Concomitant]
     Active Substance: ANASTROZOLE
  2. IBRANCE [Suspect]
     Active Substance: PALBOCICLIB
     Dates: start: 20190213

REACTIONS (1)
  - Alopecia [None]

NARRATIVE: CASE EVENT DATE: 20190722
